FAERS Safety Report 6558985-3 (Version None)
Quarter: 2010Q1

REPORT INFORMATION
  Report Type: 
  Country: None (occurrence: None)
  Receive Date: 20100129
  Receipt Date: 20100119
  Transmission Date: 20100710
  Serious: Yes (Death, Hospitalization)
  Sender: FDA-Public Use
  Company Number: DE-WYE-H13117710

PATIENT
  Sex: Male

DRUGS (4)
  1. PANTOPRAZOLE [Suspect]
     Dates: start: 20080723
  2. OXCARBAZEPINE [Suspect]
     Dates: start: 20080724, end: 20080726
  3. BETABION [Suspect]
     Dates: start: 20080722, end: 20080726
  4. DISTRANEURIN [Suspect]
     Route: 048
     Dates: start: 20080724, end: 20080726

REACTIONS (3)
  - CARDIAC FAILURE ACUTE [None]
  - CARDIOVASCULAR DISORDER [None]
  - RESPIRATORY ARREST [None]
